FAERS Safety Report 10657941 (Version 3)
Quarter: 2015Q1

REPORT INFORMATION
  Report Type: Report from Study
  Country: CA (occurrence: CA)
  Receive Date: 20141217
  Receipt Date: 20150318
  Transmission Date: 20150720
  Serious: Yes (Other)
  Sender: FDA-Public Use
  Company Number: CA-SA-2014SA171900

PATIENT
  Age: 53 Year
  Sex: Female

DRUGS (7)
  1. ALL OTHER THERAPEUTIC PRODUCTS [Concomitant]
     Active Substance: UNSPECIFIED INGREDIENT
     Route: 048
  2. TYLENOL [Concomitant]
     Active Substance: ACETAMINOPHEN
     Indication: PAIN
     Route: 048
  3. VITAMIN D [Concomitant]
     Active Substance: CHOLECALCIFEROL
     Indication: MULTIPLE SCLEROSIS
     Route: 048
  4. VITAMIN A [Concomitant]
     Active Substance: VITAMIN A
     Indication: MULTIPLE SCLEROSIS
     Route: 048
  5. VITAMIN B12 [Concomitant]
     Active Substance: CYANOCOBALAMIN
     Indication: MULTIPLE SCLEROSIS
  6. TERIFLUNOMIDE [Suspect]
     Active Substance: TERIFLUNOMIDE
     Indication: MULTIPLE SCLEROSIS
     Route: 048
     Dates: start: 20140310
  7. POTASSIUM [Concomitant]
     Active Substance: POTASSIUM
     Indication: MULTIPLE SCLEROSIS
     Route: 048

REACTIONS (1)
  - Breast mass [Recovered/Resolved]
